FAERS Safety Report 5084165-7 (Version None)
Quarter: 2006Q3

REPORT INFORMATION
  Report Type: 
  Country: None (occurrence: None)
  Receive Date: 20060816
  Receipt Date: 20060801
  Transmission Date: 20061208
  Serious: No
  Sender: FDA-Public Use
  Company Number: 2006S1007172

PATIENT
  Sex: Female

DRUGS (3)
  1. LISINOPRIL [Suspect]
     Indication: HYPERTENSION
     Dosage: 20 MG; QD; PO
     Route: 048
     Dates: start: 20060303
  2. HYDROCHLOROTHIAZIDE (CON.) [Concomitant]
  3. ACETYLSALICYLIC ACID (CON.) [Concomitant]

REACTIONS (2)
  - COUGH [None]
  - THROMBOCYTHAEMIA [None]
